FAERS Safety Report 6360038-4 (Version None)
Quarter: 2009Q3

REPORT INFORMATION
  Report Type: 
  Country: None (occurrence: None)
  Receive Date: 20090917
  Receipt Date: 20090908
  Transmission Date: 20100115
  Serious: Yes (Other)
  Sender: FDA-Public Use
  Company Number: PHEH2008US09090

PATIENT
  Sex: Male

DRUGS (1)
  1. AREDIA [Suspect]
     Dosage: UNK

REACTIONS (16)
  - ANAEMIA [None]
  - ANHEDONIA [None]
  - ANXIETY [None]
  - CELLULITIS [None]
  - DISABILITY [None]
  - DIVERTICULUM [None]
  - GINGIVAL PAIN [None]
  - GINGIVAL RECESSION [None]
  - INJURY [None]
  - ORAL PAIN [None]
  - OSTEONECROSIS [None]
  - PAIN [None]
  - PAIN IN JAW [None]
  - PAROTID GLAND ENLARGEMENT [None]
  - SALIVARY GLAND PAIN [None]
  - TOOTHACHE [None]
